FAERS Safety Report 9324852 (Version 2)
Quarter: 2013Q3

REPORT INFORMATION
  Report Type: Spontaneous
  Country: US (occurrence: US)
  Receive Date: 20130603
  Receipt Date: 20130802
  Transmission Date: 20140515
  Serious: Yes (Death, Other)
  Sender: FDA-Public Use
  Company Number: PHEH2013US011991

PATIENT
  Sex: Male

DRUGS (2)
  1. MYFORTIC [Suspect]
     Indication: RENAL TRANSPLANT
     Dosage: UNK
  2. NEORAL [Suspect]
     Indication: RENAL TRANSPLANT
     Dosage: UNK

REACTIONS (2)
  - Death [Fatal]
  - Aplastic anaemia [Unknown]
